FAERS Safety Report 7156289-1 (Version None)
Quarter: 2010Q4

REPORT INFORMATION
  Report Type: 
  Country: None (occurrence: None)
  Receive Date: 20101214
  Receipt Date: 20101208
  Transmission Date: 20110411
  Serious: Yes (Hospitalization)
  Sender: FDA-Public Use
  Company Number: US-GENZYME-CERZ-1001691

PATIENT
  Sex: Female
  Weight: 36 kg

DRUGS (1)
  1. CEREZYME [Suspect]
     Indication: GAUCHER'S DISEASE
     Dosage: 88.8 U/KG, Q2W
     Route: 042
     Dates: start: 20070901

REACTIONS (2)
  - BONE PAIN [None]
  - RESPIRATORY DISORDER [None]
